FAERS Safety Report 14984057 (Version 1)
Quarter: 2018Q2

REPORT INFORMATION
  Report Type: Spontaneous
  Country: US (occurrence: US)
  Receive Date: 20180517
  Receipt Date: 20180517
  Transmission Date: 20180711
  Serious: No
  Sender: FDA-Public Use
  Company Number: None

PATIENT
  Age: 29 Year
  Sex: Female

DRUGS (8)
  1. SYMBICORT [Concomitant]
     Active Substance: BUDESONIDE\FORMOTEROL FUMARATE DIHYDRATE
  2. CAFFEINE. [Concomitant]
     Active Substance: CAFFEINE
  3. NEXPLANON [Concomitant]
     Active Substance: ETONOGESTREL
  4. ALBUTEROL. [Concomitant]
     Active Substance: ALBUTEROL
  5. OLANZAPINE. [Suspect]
     Active Substance: OLANZAPINE
     Indication: STRESS
     Route: 048
  6. OLANZAPINE. [Suspect]
     Active Substance: OLANZAPINE
     Indication: DEPRESSION
     Route: 048
  7. ADDERALL [Concomitant]
     Active Substance: AMPHETAMINE ASPARTATE\AMPHETAMINE SULFATE\DEXTROAMPHETAMINE SACCHARATE\DEXTROAMPHETAMINE SULFATE
  8. CLARITIN [Concomitant]
     Active Substance: LORATADINE

REACTIONS (6)
  - Personality change [None]
  - Dissociative disorder [None]
  - Thinking abnormal [None]
  - Anhedonia [None]
  - Impaired self-care [None]
  - Quality of life decreased [None]
